FAERS Safety Report 14694473 (Version 4)
Quarter: 2018Q3

REPORT INFORMATION
  Report Type: Spontaneous
  Country: FR (occurrence: FR)
  Receive Date: 20180329
  Receipt Date: 20180724
  Transmission Date: 20181010
  Serious: Yes (Hospitalization, Other)
  Sender: FDA-Public Use
  Company Number: FR-B.I. PHARMACEUTICALS,INC./RIDGEFIELD-2018-BI-017244

PATIENT
  Age: 85 Year
  Sex: Female
  Weight: 40 kg

DRUGS (10)
  1. PIPERACILLINE TAZOBACTAM MYLAN [Suspect]
     Active Substance: PIPERACILLIN SODIUM\TAZOBACTAM SODIUM
     Indication: PUNCTURE SITE ABSCESS
     Route: 042
     Dates: start: 20180320, end: 20180403
  2. TAZOCILLINE [Suspect]
     Active Substance: PIPERACILLIN SODIUM\TAZOBACTAM SODIUM
     Indication: PNEUMONIA
     Route: 042
     Dates: start: 20180321
  3. CIPROFLOXACINE [Suspect]
     Active Substance: CIPROFLOXACIN
     Indication: PUNCTURE SITE ABSCESS
     Dosage: STRENGTH 200 MG/100 ML,  FORM SOLUTION POUR PERFUSION
     Route: 042
     Dates: start: 20180321, end: 20180403
  4. INNOHEP [Concomitant]
     Active Substance: TINZAPARIN SODIUM
     Indication: PRODUCT USED FOR UNKNOWN INDICATION
     Route: 058
     Dates: start: 201712
  5. CIFLOX [Suspect]
     Active Substance: CIPROFLOXACIN
     Indication: PNEUMONIA
     Route: 048
     Dates: start: 20180321
  6. GILOTRIF [Suspect]
     Active Substance: AFATINIB
     Indication: LUNG NEOPLASM MALIGNANT
     Route: 048
     Dates: start: 20180308, end: 20180320
  7. GILOTRIF [Suspect]
     Active Substance: AFATINIB
     Indication: EGFR GENE MUTATION
  8. GILOTRIF [Suspect]
     Active Substance: AFATINIB
     Indication: BRONCHIAL CARCINOMA
  9. BISOCE [Concomitant]
     Active Substance: BISOPROLOL
     Indication: PRODUCT USED FOR UNKNOWN INDICATION
     Route: 048
  10. LASILIX [Concomitant]
     Active Substance: FUROSEMIDE
     Indication: PRODUCT USED FOR UNKNOWN INDICATION
     Route: 048

REACTIONS (5)
  - Erythema multiforme [Recovered/Resolved]
  - Diarrhoea [Recovered/Resolved]
  - Dermatitis bullous [Recovering/Resolving]
  - Pneumonia [Not Recovered/Not Resolved]
  - Fistula [Recovered/Resolved]

NARRATIVE: CASE EVENT DATE: 201803
